FAERS Safety Report 10029300 (Version 10)
Quarter: 2015Q4

REPORT INFORMATION
  Report Type: Spontaneous
  Country: US (occurrence: US)
  Receive Date: 20140321
  Receipt Date: 20151109
  Transmission Date: 20160304
  Serious: Yes (Death, Hospitalization, Other)
  Sender: FDA-Public Use
  Company Number: US-SANOFI-AVENTIS-2012SA066647

PATIENT
  Age: 70 Year
  Sex: Female

DRUGS (52)
  1. CEFOTETAN [Concomitant]
     Active Substance: CEFOTETAN DISODIUM
  2. ADVAIR HFA [Concomitant]
     Active Substance: FLUTICASONE PROPIONATE\SALMETEROL XINAFOATE
     Dosage: 1PUFF
  3. VERSED [Concomitant]
     Active Substance: MIDAZOLAM HYDROCHLORIDE
     Route: 042
  4. SERTRALINE HYDROCHLORIDE. [Concomitant]
     Active Substance: SERTRALINE HYDROCHLORIDE
  5. COUMADIN [Concomitant]
     Active Substance: WARFARIN SODIUM
  6. DEMEROL [Concomitant]
     Active Substance: MEPERIDINE HYDROCHLORIDE
     Route: 042
  7. FLEXERIL [Concomitant]
     Active Substance: CYCLOBENZAPRINE HYDROCHLORIDE
  8. VICODIN [Concomitant]
     Active Substance: ACETAMINOPHEN\HYDROCODONE BITARTRATE
  9. CYCLOBENZAPRINE [Concomitant]
     Active Substance: CYCLOBENZAPRINE
  10. RHINOCORT [Concomitant]
     Active Substance: BUDESONIDE
     Dosage: ONE SPRAY IN EACH NOSTRIL
  11. MAGNESIUM [Concomitant]
     Active Substance: MAGNESIUM
  12. HYDROXYZINE [Concomitant]
     Active Substance: HYDROXYZINE\HYDROXYZINE HYDROCHLORIDE
  13. ZOLOFT [Concomitant]
     Active Substance: SERTRALINE HYDROCHLORIDE
  14. PLAVIX [Suspect]
     Active Substance: CLOPIDOGREL BISULFATE
     Indication: CEREBROVASCULAR ACCIDENT
     Dosage: THERAPY DATES: FIRST TAKEN 2/04?LAST TAKEN: 1/08
     Route: 048
     Dates: start: 200402, end: 200801
  15. AMLODIPINE [Concomitant]
     Active Substance: AMLODIPINE BESYLATE
  16. BENAZEPRIL [Concomitant]
     Active Substance: BENAZEPRIL HYDROCHLORIDE
  17. NORVASC [Concomitant]
     Active Substance: AMLODIPINE BESYLATE
  18. NASACORT [Concomitant]
     Active Substance: TRIAMCINOLONE ACETONIDE
  19. CARISOPRODOL. [Concomitant]
     Active Substance: CARISOPRODOL
  20. COZAAR [Concomitant]
     Active Substance: LOSARTAN POTASSIUM
  21. CEFTIN [Concomitant]
     Active Substance: CEFUROXIME AXETIL
  22. METOPROLOL [Concomitant]
     Active Substance: METOPROLOL
  23. NEXIUM [Concomitant]
     Active Substance: ESOMEPRAZOLE MAGNESIUM
  24. CARISOPRODOL. [Concomitant]
     Active Substance: CARISOPRODOL
  25. ALLEGRA [Concomitant]
     Active Substance: FEXOFENADINE HYDROCHLORIDE
  26. ACIPHEX [Concomitant]
     Active Substance: RABEPRAZOLE SODIUM
  27. QVAR [Concomitant]
     Active Substance: BECLOMETHASONE DIPROPIONATE
     Dosage: 2 PUFFS EVERY 12 HOURS
  28. PLAVIX [Suspect]
     Active Substance: CLOPIDOGREL BISULFATE
     Indication: ARTERIAL REPAIR
     Dosage: THERAPY DATES: FIRST TAKEN 2/04?LAST TAKEN: 1/08
     Route: 048
     Dates: start: 200402, end: 200801
  29. METOPROLOL [Concomitant]
     Active Substance: METOPROLOL
  30. CLONIDINE. [Concomitant]
     Active Substance: CLONIDINE
  31. GLUCOSAMINE [Concomitant]
     Active Substance: GLUCOSAMINE
  32. METHYLPREDNISOLONE. [Concomitant]
     Active Substance: METHYLPREDNISOLONE
  33. ALBUTEROL. [Concomitant]
     Active Substance: ALBUTEROL
     Dosage: 2 PUFFS EVERY 4 HOURS
  34. LOTREL [Concomitant]
     Active Substance: AMLODIPINE BESYLATE\BENAZEPRIL HYDROCHLORIDE
  35. MEDROL [Concomitant]
     Active Substance: METHYLPREDNISOLONE
     Route: 048
  36. CATAPRES [Concomitant]
     Active Substance: CLONIDINE HYDROCHLORIDE
  37. BEXTRA [Concomitant]
     Active Substance: VALDECOXIB
  38. CLARINEX [Concomitant]
     Active Substance: DESLORATADINE
  39. CRESTOR [Concomitant]
     Active Substance: ROSUVASTATIN CALCIUM
  40. ZELNORM [Concomitant]
     Active Substance: TEGASEROD MALEATE
  41. SINGULAIR [Concomitant]
     Active Substance: MONTELUKAST SODIUM
  42. PLAVIX [Suspect]
     Active Substance: CLOPIDOGREL BISULFATE
     Indication: ANTICOAGULANT THERAPY
     Dosage: THERAPY DATES: FIRST TAKEN 2/04?LAST TAKEN: 1/08
     Route: 048
     Dates: start: 200402, end: 200801
  43. ASPIRIN. [Concomitant]
     Active Substance: ASPIRIN
     Dates: start: 1984, end: 2008
  44. ZOCOR [Concomitant]
     Active Substance: SIMVASTATIN
  45. PREMARIN [Concomitant]
     Active Substance: ESTROGENS, CONJUGATED
  46. BROMFED [Concomitant]
     Active Substance: BROMPHENIRAMINE MALEATE\DEXTROMETHORPHAN HYDROBROMIDE\PSEUDOEPHEDRINE HYDROCHLORIDE
  47. DONNATAL [Concomitant]
     Active Substance: ATROPINE SULFATE\HYOSCYAMINE SULFATE\PHENOBARBITAL\SCOPOLAMINE HYDROBROMIDE
  48. LOTRISONE [Concomitant]
     Active Substance: BETAMETHASONE DIPROPIONATE\CLOTRIMAZOLE
  49. PHENOBARB [Concomitant]
     Active Substance: PHENOBARBITAL SODIUM
  50. HYDROCODONE [Concomitant]
     Active Substance: HYDROCODONE
     Dosage: EVERY 6-8 HOURS
  51. ZETIA [Concomitant]
     Active Substance: EZETIMIBE
  52. DUONEB [Concomitant]
     Active Substance: ALBUTEROL SULFATE\IPRATROPIUM BROMIDE

REACTIONS (5)
  - Thrombotic thrombocytopenic purpura [Unknown]
  - Death [Fatal]
  - Gastrointestinal haemorrhage [Unknown]
  - Multiple injuries [Unknown]
  - Ulcer haemorrhage [Unknown]

NARRATIVE: CASE EVENT DATE: 200801
